FAERS Safety Report 6448905-4 (Version None)
Quarter: 2009Q4

REPORT INFORMATION
  Report Type: 
  Country: None (occurrence: None)
  Receive Date: 20091119
  Receipt Date: 20091119
  Transmission Date: 20100525
  Serious: No
  Sender: FDA-Public Use
  Company Number: None

PATIENT

DRUGS (2)
  1. TOPIRAMATE [Suspect]
  2. TOPAMAX [Suspect]

REACTIONS (5)
  - BLOOD URINE PRESENT [None]
  - CYSTITIS NONINFECTIVE [None]
  - HYPERTONIC BLADDER [None]
  - MALAISE [None]
  - PRODUCT SUBSTITUTION ISSUE [None]
